FAERS Safety Report 9111246 (Version 2)
Quarter: 2014Q4

REPORT INFORMATION
  Report Type: Spontaneous
  Country: US (occurrence: US)
  Receive Date: 20130219
  Receipt Date: 20141205
  Transmission Date: 20150529
  Serious: No
  Sender: FDA-Public Use
  Company Number: US-BRISTOL-MYERS SQUIBB COMPANY-17057928

PATIENT
  Age: 18 Year
  Sex: Female
  Weight: 52.15 kg

DRUGS (3)
  1. PLAQUENIL [Concomitant]
     Active Substance: HYDROXYCHLOROQUINE SULFATE
     Dosage: TABS
  2. ABATACEPT SUBQ INJECTION 125MG/ML [Suspect]
     Active Substance: ABATACEPT
     Indication: RHEUMATOID ARTHRITIS
     Dosage: RECENT DOSE 22OCT2012
     Route: 058
     Dates: start: 201207
  3. ROBAXIN [Concomitant]
     Active Substance: METHOCARBAMOL
     Dosage: TABLET

REACTIONS (3)
  - Back injury [Unknown]
  - Nasopharyngitis [Unknown]
  - Drug administration error [Unknown]
